FAERS Safety Report 15169558 (Version 1)
Quarter: 2018Q3

REPORT INFORMATION
  Report Type: Spontaneous
  Country: RU (occurrence: RU)
  Receive Date: 20180720
  Receipt Date: 20180720
  Transmission Date: 20181010
  Serious: Yes (Other)
  Sender: FDA-Public Use
  Company Number: RU-ASPEN-GLO2018RU006987

PATIENT
  Age: 59 Year
  Sex: Female

DRUGS (2)
  1. CHLORAMBUCIL [Suspect]
     Active Substance: CHLORAMBUCIL
     Indication: MYCOSIS FUNGOIDES
     Dosage: UNK
     Route: 065
  2. METHOTREXATE. [Suspect]
     Active Substance: METHOTREXATE
     Indication: MYCOSIS FUNGOIDES
     Dosage: UNK
     Route: 065

REACTIONS (1)
  - Mycosis fungoides recurrent [Recovered/Resolved]
